FAERS Safety Report 16521791 (Version 2)
Quarter: 2019Q3

REPORT INFORMATION
  Report Type: Spontaneous
  Country: US (occurrence: US)
  Receive Date: 20190703
  Receipt Date: 20190731
  Transmission Date: 20191004
  Serious: Yes (Hospitalization)
  Sender: FDA-Public Use
  Company Number: US-TEVA-2019-US-1070476

PATIENT
  Age: 59 Year
  Sex: Male

DRUGS (1)
  1. PREDNISONE. [Suspect]
     Active Substance: PREDNISONE
     Indication: RHEUMATOID ARTHRITIS
     Dosage: 20 MILLIGRAM DAILY;
     Route: 065

REACTIONS (6)
  - Endocarditis bacterial [Recovered/Resolved]
  - Bacteraemia [Recovered/Resolved]
  - Erysipelothrix infection [Recovered/Resolved]
  - Bronchiolitis [Recovered/Resolved]
  - Mitral valve incompetence [Recovered/Resolved]
  - Skin ulcer [Recovered/Resolved]
